FAERS Safety Report 8843842 (Version 1)
Quarter: 2012Q4

REPORT INFORMATION
  Report Type: 
  Country: US (occurrence: US)
  Receive Date: 20121016
  Receipt Date: 20121016
  Transmission Date: 20130627
  Serious: No
  Sender: FDA-Public Use
  Company Number: US-ASTRAZENECA-2012SE15794

PATIENT
  Age: 47 Year
  Sex: Male

DRUGS (3)
  1. ACCOLATE [Suspect]
     Route: 048
  2. ACCOLATE [Suspect]
     Route: 048
  3. ACCOLATE [Suspect]
     Route: 048

REACTIONS (4)
  - Pain [Unknown]
  - Asthma [Unknown]
  - Incorrect dose administered [Unknown]
  - Drug dose omission [Unknown]
